FAERS Safety Report 9150780 (Version 1)
Quarter: 2013Q1

REPORT INFORMATION
  Report Type: Spontaneous
  Country: US (occurrence: None)
  Receive Date: 20130214
  Receipt Date: 20130214
  Transmission Date: 20140127
  Serious: Yes (Other)
  Sender: FDA-Public Use
  Company Number: 1210-609

PATIENT
  Age: 84 Year
  Sex: Female

DRUGS (5)
  1. EYLEA [Suspect]
     Indication: AGE-RELATED MACULAR DEGENERATION
     Dosage: INTRAVITREAL
     Dates: start: 20120229, end: 20120711
  2. VITAMINS [Concomitant]
  3. BONIVA ( IBANDRONATE SODIUM) [Concomitant]
  4. CALCIUM (CALCIUM) [Concomitant]
  5. CRESTOR (ROSUVASTASTATIN CALCIUM) [Concomitant]

REACTIONS (1)
  - Visual acuity reduced [None]
